FAERS Safety Report 7862471-8 (Version None)
Quarter: 2011Q4

REPORT INFORMATION
  Report Type: 
  Country: None (occurrence: None)
  Receive Date: 20111027
  Receipt Date: 20101109
  Transmission Date: 20120403
  Serious: No
  Sender: FDA-Public Use
  Company Number: US-AMGEN-USASP2010004136

PATIENT
  Age: 67 Year
  Sex: Female
  Weight: 63.492 kg

DRUGS (6)
  1. ENBREL [Suspect]
     Indication: PRODUCT USED FOR UNKNOWN INDICATION
     Dosage: 50 MG, QWK
  2. MULTIVITAMIN                       /00097801/ [Concomitant]
     Route: 048
  3. CALCIUM +VIT D [Concomitant]
     Route: 048
  4. METHOTREXATE [Concomitant]
     Dosage: 2.5 MG, UNK
  5. NAPROXEN [Concomitant]
     Dosage: 500 MG, UNK
     Route: 048
  6. PREDNISONE [Concomitant]
     Dosage: 2.5 MG, UNK
     Route: 048

REACTIONS (4)
  - SINUSITIS [None]
  - INJECTION SITE HAEMATOMA [None]
  - DRY SKIN [None]
  - TOOTHACHE [None]
